FAERS Safety Report 5633179-4 (Version None)
Quarter: 2008Q1

REPORT INFORMATION
  Report Type: 
  Country: None (occurrence: None)
  Receive Date: 20080221
  Receipt Date: 20080213
  Transmission Date: 20080703
  Serious: Yes (Life-Threatening)
  Sender: FDA-Public Use
  Company Number: JP-BRISTOL-MYERS SQUIBB COMPANY-14082515

PATIENT
  Age: 66 Year
  Sex: Female

DRUGS (3)
  1. CARBIDOPA + LEVODOPA [Suspect]
     Indication: PARKINSON'S DISEASE
     Dosage: DISSOLVED INCARMELLOSE AND WAS ADMINISTERED WITH A 24-HOUR CONTINUOUS DUODENAL INFUSION.
     Route: 048
     Dates: start: 20080201, end: 20080207
  2. TANNALBIN [Concomitant]
     Dates: start: 20080201, end: 20080206
  3. OMEPRAL [Concomitant]
     Dates: start: 20080203

REACTIONS (3)
  - INCORRECT ROUTE OF DRUG ADMINISTRATION [None]
  - PERITONITIS [None]
  - WRONG TECHNIQUE IN DRUG USAGE PROCESS [None]
